FAERS Safety Report 7534771-2 (Version None)
Quarter: 2011Q2

REPORT INFORMATION
  Report Type: 
  Country: None (occurrence: None)
  Receive Date: 20110609
  Receipt Date: 20080729
  Transmission Date: 20111010
  Serious: Yes (Death, Other)
  Sender: FDA-Public Use
  Company Number: PHHY2008CA14149

PATIENT
  Sex: Female

DRUGS (1)
  1. CLOZAPINE [Suspect]
     Dosage: 12.5 MG, UNK
     Dates: start: 20080416

REACTIONS (3)
  - DELIRIUM [None]
  - DEMENTIA [None]
  - CEREBROVASCULAR ACCIDENT [None]
